FAERS Safety Report 16038284 (Version 7)
Quarter: 2020Q4

REPORT INFORMATION
  Report Type: Report from Study
  Country: CO (occurrence: CO)
  Receive Date: 20190305
  Receipt Date: 20201022
  Transmission Date: 20210113
  Serious: Yes (Hospitalization)
  Sender: FDA-Public Use
  Company Number: CO-INCYTE CORPORATION-2019IN001785

PATIENT

DRUGS (5)
  1. OMEPRAZOLE. [Concomitant]
     Active Substance: OMEPRAZOLE
     Indication: PROPHYLAXIS
     Dosage: 20 MG, BID
     Route: 048
     Dates: start: 201901
  2. JAKAVI [Suspect]
     Active Substance: RUXOLITINIB
     Dosage: 40 MG, QD (ONCE A DAY)
     Route: 048
     Dates: end: 201907
  3. JAKAVI [Suspect]
     Active Substance: RUXOLITINIB
     Dosage: 40 MG, QD (ONCE A DAY)
     Route: 048
  4. JAKAVI [Suspect]
     Active Substance: RUXOLITINIB
     Indication: MYELOFIBROSIS
     Dosage: 20 MG, Q12H
     Route: 048
     Dates: start: 20180716
  5. JAKAVI [Suspect]
     Active Substance: RUXOLITINIB
     Dosage: 20 MG, Q12H (STARTED ONE YEAR)
     Route: 048
     Dates: end: 20200920

REACTIONS (16)
  - Memory impairment [Unknown]
  - Arterial rupture [Unknown]
  - Blood uric acid increased [Unknown]
  - Arthralgia [Unknown]
  - Haematemesis [Recovered/Resolved]
  - Bacterial test positive [Unknown]
  - Asthenia [Unknown]
  - Pain in extremity [Recovering/Resolving]
  - Haemorrhage [Unknown]
  - Movement disorder [Recovering/Resolving]
  - Varices oesophageal [Recovered/Resolved]
  - Pyrexia [Unknown]
  - Malaise [Unknown]
  - Hepatic cirrhosis [Unknown]
  - Neck pain [Unknown]
  - Inappropriate schedule of product administration [Unknown]

NARRATIVE: CASE EVENT DATE: 201901
